FAERS Safety Report 22331945 (Version 1)
Quarter: 2023Q2

REPORT INFORMATION
  Report Type: Spontaneous
  Country: VE (occurrence: VE)
  Receive Date: 20230517
  Receipt Date: 20230517
  Transmission Date: 20230722
  Serious: Yes (Other)
  Sender: FDA-Public Use
  Company Number: VE-PFIZER INC-PV202300085539

PATIENT
  Age: 69 Year
  Sex: Female

DRUGS (1)
  1. BOSULIF [Suspect]
     Active Substance: BOSUTINIB MONOHYDRATE
     Indication: Chronic myeloid leukaemia
     Dosage: 500 MG

REACTIONS (12)
  - Diarrhoea [Unknown]
  - Pyrexia [Unknown]
  - Hypoglycaemia [Unknown]
  - Fall [Unknown]
  - Loss of consciousness [Unknown]
  - Head injury [Unknown]
  - Limb injury [Unknown]
  - Chest injury [Unknown]
  - Rib fracture [Unknown]
  - Neuritis [Unknown]
  - Discomfort [Unknown]
  - Pain [Unknown]
